FAERS Safety Report 24700732 (Version 3)
Quarter: 2025Q4

REPORT INFORMATION
  Report Type: Report from Study
  Country: GB (occurrence: GB)
  Receive Date: 20241205
  Receipt Date: 20251001
  Transmission Date: 20260118
  Serious: Yes (Other)
  Sender: ROCHE
  Company Number: GB-ROCHE-3364968

PATIENT
  Sex: Female

DRUGS (1)
  1. TOCILIZUMAB [Suspect]
     Active Substance: TOCILIZUMAB
     Indication: Product used for unknown indication
     Route: 058
     Dates: start: 202103

REACTIONS (7)
  - Nasopharyngitis [Unknown]
  - Cough [Unknown]
  - Malaise [Unknown]
  - Fatigue [Unknown]
  - Macular degeneration [Unknown]
  - Aphonia [Unknown]
  - Eye infection [Unknown]
